FAERS Safety Report 4931718-X (Version None)
Quarter: 2006Q1

REPORT INFORMATION
  Report Type: 
  Country: None (occurrence: None)
  Receive Date: 20060303
  Receipt Date: 20060214
  Transmission Date: 20060701
  Serious: Yes (Disabling)
  Sender: FDA-Public Use
  Company Number: 2006UW02950

PATIENT
  Age: 46 Year
  Sex: Female
  Weight: 60 kg

DRUGS (6)
  1. FASLODEX [Suspect]
     Indication: BREAST CANCER FEMALE
     Route: 030
     Dates: start: 20051201, end: 20060201
  2. ZOMETA [Concomitant]
     Dosage: 4 MG EACH 28 DAYS
     Route: 042
     Dates: start: 20050501
  3. EFFEXOR [Concomitant]
     Route: 048
     Dates: start: 20051201
  4. TYLENOL (CAPLET) [Concomitant]
     Route: 048
     Dates: start: 20051201
  5. LISADOR [Concomitant]
  6. DICLOFENAC [Concomitant]
     Dosage: 1 PILL FOR 3 DAYS

REACTIONS (8)
  - DYSLALIA [None]
  - INSOMNIA [None]
  - MOOD ALTERED [None]
  - MUSCLE FATIGUE [None]
  - MUSCLE SPASMS [None]
  - OEDEMA PERIPHERAL [None]
  - POLLAKIURIA [None]
  - URINE OUTPUT DECREASED [None]
